FAERS Safety Report 13638117 (Version 1)
Quarter: 2017Q2

REPORT INFORMATION
  Report Type: Spontaneous
  Country: US (occurrence: US)
  Receive Date: 20170609
  Receipt Date: 20170609
  Transmission Date: 20170830
  Serious: Yes (Other)
  Sender: FDA-Public Use
  Company Number: US-FRESENIUS KABI-FK201704981

PATIENT
  Age: 63 Year
  Sex: Female

DRUGS (3)
  1. FEXOFENADINE HYDROCHLORIDE\PSEUDOEPHEDRINE HYDROCHLORIDE [Suspect]
     Active Substance: FEXOFENADINE HYDROCHLORIDE\PSEUDOEPHEDRINE HYDROCHLORIDE
     Indication: NASAL DECONGESTION THERAPY
     Route: 065
  2. METOPROLOL INJECTION (MANUFACTURER UNKNOWN) [Suspect]
     Active Substance: METOPROLOL
     Indication: ATRIAL FIBRILLATION
     Route: 042
  3. METOPROLOL INJECTION (MANUFACTURER UNKNOWN) [Interacting]
     Active Substance: METOPROLOL
     Route: 048

REACTIONS (3)
  - Drug interaction [Recovered/Resolved]
  - Arteriospasm coronary [Recovered/Resolved]
  - Acute myocardial infarction [Recovered/Resolved]
